FAERS Safety Report 22697414 (Version 3)
Quarter: 2024Q2

REPORT INFORMATION
  Report Type: Spontaneous
  Country: PE (occurrence: PE)
  Receive Date: 20230712
  Receipt Date: 20240530
  Transmission Date: 20240715
  Serious: Yes (Hospitalization, Other)
  Sender: FDA-Public Use
  Company Number: PE-PFIZER INC-PV202300088773

PATIENT
  Age: 62 Year
  Sex: Male

DRUGS (1)
  1. INLYTA [Suspect]
     Active Substance: AXITINIB
     Dosage: UNK
     Route: 048
     Dates: start: 202303, end: 20230707

REACTIONS (15)
  - Hypertension [Recovering/Resolving]
  - Muscular weakness [Recovering/Resolving]
  - Tremor [Recovering/Resolving]
  - Paraesthesia [Recovering/Resolving]
  - Blindness transient [Recovered/Resolved]
  - Ischaemic stroke [Recovering/Resolving]
  - Diarrhoea [Recovered/Resolved]
  - Blood uric acid increased [Recovering/Resolving]
  - Abdominal discomfort [Recovered/Resolved]
  - Contusion [Not Recovered/Not Resolved]
  - Weight decreased [Not Recovered/Not Resolved]
  - Fatigue [Not Recovered/Not Resolved]
  - Blood triglycerides increased [Unknown]
  - Dysarthria [Recovered/Resolved]
  - Traumatic shock [Recovered/Resolved]

NARRATIVE: CASE EVENT DATE: 20230101
